FAERS Safety Report 13707644 (Version 3)
Quarter: 2017Q3

REPORT INFORMATION
  Report Type: Spontaneous
  Country: US (occurrence: US)
  Receive Date: 20170630
  Receipt Date: 20170717
  Transmission Date: 20171127
  Serious: Yes (Hospitalization, Other)
  Sender: FDA-Public Use
  Company Number: US-HORIZON-PRO-0034-2017

PATIENT
  Sex: Male

DRUGS (2)
  1. PROCYSBI DELAYED-RELEASE [Suspect]
     Active Substance: CYSTEAMINE BITARTRATE
     Indication: CYSTINOSIS
  2. CYSTAMINE DROPS [Concomitant]
     Indication: CYSTINOSIS

REACTIONS (3)
  - Cerebrovascular accident [Unknown]
  - Cystinosis [Unknown]
  - Disease progression [Unknown]

NARRATIVE: CASE EVENT DATE: 2017
